FAERS Safety Report 6725434-1 (Version None)
Quarter: 2010Q2

REPORT INFORMATION
  Report Type: 
  Country: None (occurrence: None)
  Receive Date: 20100513
  Receipt Date: 20100513
  Transmission Date: 20101027
  Serious: Yes (Hospitalization)
  Sender: FDA-Public Use
  Company Number: None

PATIENT
  Age: 46 Year
  Sex: Male

DRUGS (2)
  1. DOXIL [Suspect]
     Indication: BURKITT'S LYMPHOMA
  2. RITUXIMAB [Suspect]

REACTIONS (2)
  - CONVULSION [None]
  - ENCEPHALITIS [None]
